FAERS Safety Report 12438805 (Version 1)
Quarter: 2016Q2

REPORT INFORMATION
  Report Type: Spontaneous
  Country: BR (occurrence: BR)
  Receive Date: 20160606
  Receipt Date: 20160606
  Transmission Date: 20160815
  Serious: Yes (Hospitalization)
  Sender: FDA-Public Use
  Company Number: BR-TEVA-663501ISR

PATIENT
  Age: 73 Year
  Sex: Male
  Weight: 66 kg

DRUGS (9)
  1. FAULDFLUOR [Suspect]
     Active Substance: FLUOROURACIL
     Indication: COLON CANCER
     Route: 042
     Dates: start: 20160223
  2. METFORMIN [Concomitant]
     Active Substance: METFORMIN HYDROCHLORIDE
     Indication: DIABETES MELLITUS
     Dosage: 1700 MILLIGRAM DAILY;
  3. LUFTAL [Concomitant]
     Active Substance: DIMETHICONE
  4. FAULDFLUOR BI [Suspect]
     Active Substance: FLUOROURACIL
     Indication: COLON CANCER
     Dosage: 14/14 DAYS (D1-D3)
     Route: 042
     Dates: start: 20160223
  5. CORUS-H [Concomitant]
     Indication: HYPERTENSION
     Dosage: 50 MILLIGRAM DAILY;
  6. OMEPRAZOLE. [Concomitant]
     Active Substance: OMEPRAZOLE
  7. DIPYRONE [Concomitant]
     Active Substance: DIPYRONE
     Dosage: IF NECESSARY
  8. TEVAOXALI [Suspect]
     Active Substance: OXALIPLATIN
     Indication: COLON CANCER
     Route: 042
     Dates: start: 20160223
  9. AVASTIN [Suspect]
     Active Substance: BEVACIZUMAB
     Indication: COLON CANCER
     Route: 042
     Dates: start: 20160223

REACTIONS (7)
  - Drug intolerance [Recovered/Resolved]
  - Dehydration [Recovered/Resolved]
  - Diarrhoea [Recovered/Resolved]
  - Food intolerance [Recovered/Resolved]
  - Abdominal pain [Recovered/Resolved]
  - Colitis [Recovered/Resolved]
  - General physical condition abnormal [Recovered/Resolved]

NARRATIVE: CASE EVENT DATE: 201605
